FAERS Safety Report 9917755 (Version 1)
Quarter: 2014Q1

REPORT INFORMATION
  Report Type: Spontaneous
  Country: GB (occurrence: GB)
  Receive Date: 20140221
  Receipt Date: 20140221
  Transmission Date: 20141002
  Serious: Yes (Other)
  Sender: FDA-Public Use
  Company Number: GB-ABBVIE-14P-167-1201715-00

PATIENT
  Age: 21 Year
  Sex: Female

DRUGS (2)
  1. ADALIMUMAB [Suspect]
     Indication: CROHN^S DISEASE
  2. PREDNISOLONE [Concomitant]
     Indication: CROHN^S DISEASE

REACTIONS (2)
  - Autoimmune neutropenia [Recovered/Resolved]
  - Injection site reaction [Recovered/Resolved]
